FAERS Safety Report 9226805 (Version 3)
Quarter: 2013Q3

REPORT INFORMATION
  Report Type: Spontaneous
  Country: US (occurrence: US)
  Receive Date: 20130412
  Receipt Date: 20130729
  Transmission Date: 20140515
  Serious: Yes (Hospitalization)
  Sender: FDA-Public Use
  Company Number: US-BAYER-2013-044959

PATIENT
  Age: 34 Year
  Sex: Female
  Weight: 109 kg

DRUGS (7)
  1. YASMIN [Suspect]
     Dosage: UNK
     Dates: start: 2006, end: 2007
  2. YAZ [Suspect]
     Dosage: UNK
     Dates: start: 2006, end: 2007
  3. OCELLA [Suspect]
     Dosage: UNK
     Dates: start: 2006, end: 2007
  4. VALTREX [Concomitant]
  5. PROZAC [Concomitant]
  6. ADVIL [Concomitant]
  7. LORTAB [Concomitant]

REACTIONS (8)
  - Pulmonary embolism [None]
  - Abdominal pain [None]
  - Pain [None]
  - Injury [None]
  - General physical health deterioration [None]
  - Anxiety [None]
  - Emotional distress [None]
  - Pain [None]
